FAERS Safety Report 14376519 (Version 2)
Quarter: 2018Q1

REPORT INFORMATION
  Report Type: Spontaneous
  Country: FR (occurrence: FR)
  Receive Date: 20180111
  Receipt Date: 20180316
  Transmission Date: 20180509
  Serious: Yes (Life-Threatening, Hospitalization, Other)
  Sender: FDA-Public Use
  Company Number: FR-PFIZER INC-2018012748

PATIENT
  Age: 56 Year
  Sex: Male
  Weight: 54 kg

DRUGS (11)
  1. VENLAFAXINE HCL [Suspect]
     Active Substance: VENLAFAXINE HYDROCHLORIDE
     Dosage: 2250 MG, UNK
     Route: 048
  2. ABILIFY [Suspect]
     Active Substance: ARIPIPRAZOLE
     Dosage: 270 MG, UNK
     Route: 048
  3. LAMOTRIGINE. [Suspect]
     Active Substance: LAMOTRIGINE
     Dosage: 300 MG, UNK
     Route: 048
  4. LAMOTRIGINE. [Suspect]
     Active Substance: LAMOTRIGINE
     Dosage: 300 MG, UNK (TABLET)
     Route: 048
  5. LORMETAZEPAM [Suspect]
     Active Substance: LORMETAZEPAM
     Dosage: 14 MG, UNK
     Route: 048
  6. HALOPERIDOL. [Concomitant]
     Active Substance: HALOPERIDOL
     Dosage: 5 MG, UNK
     Route: 065
  7. DUPHALAC [Concomitant]
     Active Substance: LACTULOSE
     Dosage: UNK
     Route: 065
  8. HALDOL [Concomitant]
     Active Substance: HALOPERIDOL
     Dosage: 5 MG, UNK
     Route: 065
  9. QUETIAPINE. [Concomitant]
     Active Substance: QUETIAPINE
     Dosage: 300 MG, UNK
     Route: 065
  10. XEROQUEL [Concomitant]
     Active Substance: QUETIAPINE FUMARATE
     Dosage: 300 MG, UNK
     Route: 065
  11. VENLAFAXINE [Suspect]
     Active Substance: VENLAFAXINE HYDROCHLORIDE
     Dosage: 2250 MG, UNK
     Route: 048

REACTIONS (9)
  - Epilepsy [Recovered/Resolved]
  - Mydriasis [Recovered/Resolved]
  - Rhabdomyolysis [Recovered/Resolved]
  - Serotonin syndrome [Unknown]
  - Loss of consciousness [Recovered/Resolved]
  - Pyramidal tract syndrome [Recovered/Resolved]
  - Respiratory distress [Recovered/Resolved]
  - Intentional overdose [Unknown]
  - Renal failure [Recovered/Resolved]

NARRATIVE: CASE EVENT DATE: 20160510
